FAERS Safety Report 24882715 (Version 3)
Quarter: 2025Q1

REPORT INFORMATION
  Report Type: Other
  Country: US (occurrence: US)
  Receive Date: 20250124
  Receipt Date: 20250220
  Transmission Date: 20250409
  Serious: No
  Sender: TRAVERE THERAPEUTICS
  Company Number: US-TRAVERE-2025TVT00035

PATIENT
  Age: 47 Year
  Sex: Female
  Weight: 59.5 kg

DRUGS (10)
  1. FILSPARI [Suspect]
     Active Substance: SPARSENTAN
     Indication: Chronic kidney disease
     Route: 048
     Dates: start: 20241011
  2. FILSPARI [Suspect]
     Active Substance: SPARSENTAN
     Indication: Gout
     Route: 048
     Dates: start: 202412, end: 20241230
  3. FILSPARI [Suspect]
     Active Substance: SPARSENTAN
     Indication: Proteinuria
  4. FILSPARI [Suspect]
     Active Substance: SPARSENTAN
     Indication: Haematuria
  5. FILSPARI [Suspect]
     Active Substance: SPARSENTAN
     Indication: IgA nephropathy
  6. FILSPARI [Suspect]
     Active Substance: SPARSENTAN
     Indication: Hyperparathyroidism secondary
  7. ZYLOPRIM [Concomitant]
     Active Substance: ALLOPURINOL
  8. FISH OIL [Concomitant]
     Active Substance: FISH OIL
  9. CRESTOR [Concomitant]
     Active Substance: ROSUVASTATIN CALCIUM
  10. VASOTEC [Concomitant]
     Active Substance: ENALAPRIL MALEATE

REACTIONS (1)
  - Hepatic enzyme increased [Recovered/Resolved]

NARRATIVE: CASE EVENT DATE: 20241228
